FAERS Safety Report 4688840-5 (Version None)
Quarter: 2005Q2

REPORT INFORMATION
  Report Type: 
  Country: None (occurrence: None)
  Receive Date: 20050613
  Receipt Date: 20050601
  Transmission Date: 20051028
  Serious: Yes (Other)
  Sender: FDA-Public Use
  Company Number: GB-GLAXOSMITHKLINE-B0383125A

PATIENT
  Age: 72 Year
  Sex: Female
  Weight: 96 kg

DRUGS (6)
  1. AMOXICILLIN [Suspect]
     Indication: BRONCHITIS
     Dosage: 500MG PER DAY
     Route: 048
     Dates: start: 20050503, end: 20050503
  2. ASPIRIN [Concomitant]
     Indication: ANTICOAGULANT THERAPY
     Dosage: 75MG PER DAY
     Route: 048
  3. BENDROFLUAZIDE [Concomitant]
     Indication: HYPERTENSION
     Dosage: 2.5MG PER DAY
     Route: 048
  4. FENTANYL [Concomitant]
     Indication: ARTHRALGIA
     Dosage: 25MG PER DAY
     Route: 062
  5. TRAMADOL [Concomitant]
     Indication: ARTHRALGIA
     Dosage: 50MG PER DAY
     Route: 048
  6. SERETIDE [Concomitant]
     Indication: ASTHMA
     Route: 065

REACTIONS (4)
  - DYSPNOEA [None]
  - RASH GENERALISED [None]
  - TREMOR [None]
  - VOMITING [None]
